FAERS Safety Report 8923459 (Version 1)
Quarter: 2012Q4

REPORT INFORMATION
  Report Type: 
  Country: US (occurrence: US)
  Receive Date: 20121123
  Receipt Date: 20121123
  Transmission Date: 20130627
  Serious: Yes (Other)
  Sender: FDA-Public Use
  Company Number: US-BAYER-2012-122551

PATIENT
  Age: 89 Year
  Sex: Female
  Weight: 88 kg

DRUGS (7)
  1. ALEVE CAPLET/TABLET,MIDOL EXTENDED RELIEF CAPLET [Suspect]
     Indication: BACK ACHE
     Dosage: Daily dose 1 DF
     Route: 048
  2. MAXZIDE [Concomitant]
  3. PERCOCET [Concomitant]
  4. LIPITOR [Concomitant]
  5. FLEXERIL [Concomitant]
  6. ICY HOT [Concomitant]
  7. ASPIRIN [Concomitant]

REACTIONS (4)
  - Chest pain [Recovered/Resolved]
  - Chest discomfort [Recovered/Resolved]
  - Dyspnoea [Recovered/Resolved]
  - Incorrect drug administration duration [None]
